FAERS Safety Report 23976878 (Version 2)
Quarter: 2024Q3

REPORT INFORMATION
  Report Type: Report from Study
  Country: US (occurrence: US)
  Receive Date: 20240614
  Receipt Date: 20240830
  Transmission Date: 20241016
  Serious: Yes (Hospitalization)
  Sender: ABBVIE
  Company Number: US-ABBVIE-5799999

PATIENT
  Sex: Male

DRUGS (1)
  1. SKYRIZI [Suspect]
     Active Substance: RISANKIZUMAB-RZAA
     Indication: Crohn^s disease
     Route: 058
     Dates: start: 20240122

REACTIONS (6)
  - Small intestinal obstruction [Recovering/Resolving]
  - Enteritis [Recovering/Resolving]
  - Heart rate increased [Recovering/Resolving]
  - Pyrexia [Recovering/Resolving]
  - Abdominal distension [Recovering/Resolving]
  - Abdominal rigidity [Recovering/Resolving]

NARRATIVE: CASE EVENT DATE: 20240101
